FAERS Safety Report 5996382-X (Version None)
Quarter: 2008Q4

REPORT INFORMATION
  Report Type: 
  Country: None (occurrence: None)
  Receive Date: 20081212
  Receipt Date: 20081015
  Transmission Date: 20090506
  Serious: No
  Sender: FDA-Public Use
  Company Number: US-ABBOTT-08P-163-0482053-00

PATIENT
  Sex: Female
  Weight: 73.094 kg

DRUGS (4)
  1. HUMIRA [Suspect]
     Indication: COLITIS ULCERATIVE
     Route: 058
     Dates: start: 20080601
  2. INFLIXIMAB [Suspect]
     Indication: COLITIS ULCERATIVE
     Dates: start: 20080101
  3. ETONOGESTREL [Suspect]
     Indication: CONTRACEPTION
     Route: 050
     Dates: start: 20080901, end: 20081002
  4. UNKNOWN ANXIETY MEDICATION [Concomitant]
     Indication: ANXIETY
     Route: 048

REACTIONS (9)
  - ANXIETY [None]
  - ASTHENIA [None]
  - CONSTIPATION [None]
  - DERMATITIS PSORIASIFORM [None]
  - DIZZINESS [None]
  - NAUSEA [None]
  - PRURITUS [None]
  - SKIN EXFOLIATION [None]
  - VISION BLURRED [None]
